FAERS Safety Report 9369497 (Version 1)
Quarter: 2013Q2

REPORT INFORMATION
  Report Type: Spontaneous
  Country: US (occurrence: US)
  Receive Date: 20130626
  Receipt Date: 20130626
  Transmission Date: 20140414
  Serious: Yes (Hospitalization)
  Sender: FDA-Public Use
  Company Number: US-PFIZER INC-2013187583

PATIENT
  Age: 56 Year
  Sex: Male
  Weight: 74.38 kg

DRUGS (2)
  1. REVATIO [Suspect]
     Indication: PULMONARY HYPERTENSION
     Dosage: 20 MG, 1X/DAY
     Route: 048
     Dates: start: 20130515
  2. REVATIO [Suspect]
     Dosage: A HALF TABLET OF SILDENAFIL 20 MG
     Route: 048
     Dates: end: 2013

REACTIONS (2)
  - Dyspnoea [Recovering/Resolving]
  - Skin tightness [Unknown]
